FAERS Safety Report 9468641 (Version 3)
Quarter: 2013Q4

REPORT INFORMATION
  Report Type: Spontaneous
  Country: IT (occurrence: IT)
  Receive Date: 20130821
  Receipt Date: 20131011
  Transmission Date: 20140711
  Serious: Yes (Life-Threatening, Hospitalization, Other)
  Sender: FDA-Public Use
  Company Number: IT-BRISTOL-MYERS SQUIBB COMPANY-19183037

PATIENT
  Age: 78 Year
  Sex: Male
  Weight: 80 kg

DRUGS (4)
  1. COUMADIN TABS 5 MG [Suspect]
     Indication: DEEP VEIN THROMBOSIS
     Route: 048
     Dates: start: 20130101, end: 20130629
  2. MARCUMAR [Suspect]
     Indication: PROPHYLAXIS
     Dosage: MARCUMAR TABS
     Route: 048
     Dates: start: 19990101, end: 20130629
  3. BLOPRESS [Concomitant]
     Indication: ESSENTIAL HYPERTENSION
     Dosage: TABS
     Route: 048
     Dates: start: 20120101, end: 20130629
  4. CONCOR [Concomitant]
     Indication: HYPERTENSION
     Route: 048
     Dates: start: 20120101, end: 20130629

REACTIONS (8)
  - Urinary retention [Recovered/Resolved]
  - Anaemia [Recovered/Resolved]
  - Epistaxis [Recovered/Resolved]
  - Haematuria [Recovered/Resolved]
  - International normalised ratio increased [Unknown]
  - Drug administration error [Unknown]
  - Bladder obstruction [Unknown]
  - Urinary bladder haemorrhage [Unknown]
